FAERS Safety Report 8479221-7 (Version None)
Quarter: 2012Q2

REPORT INFORMATION
  Report Type: 
  Country: None (occurrence: None)
  Receive Date: 20120629
  Receipt Date: 20120620
  Transmission Date: 20120825
  Serious: Yes (Death, Hospitalization)
  Sender: FDA-Public Use
  Company Number: US-GLAXOSMITHKLINE-A0777631A

PATIENT
  Age: 78 Year
  Sex: Female
  Weight: 70 kg

DRUGS (7)
  1. LASIX [Concomitant]
  2. IMDUR [Concomitant]
  3. VIOXX [Concomitant]
     Dates: start: 20000101
  4. AVANDIA [Suspect]
     Indication: DIABETES MELLITUS
     Dosage: 4MG PER DAY
     Route: 048
     Dates: start: 20000322, end: 20010101
  5. PRINIVIL [Concomitant]
  6. PRILOSEC [Concomitant]
  7. ZOCOR [Concomitant]

REACTIONS (6)
  - CARDIOGENIC SHOCK [None]
  - RESPIRATORY FAILURE [None]
  - CARDIAC FAILURE CONGESTIVE [None]
  - MYOCARDIAL INFARCTION [None]
  - RENAL FAILURE [None]
  - HEART INJURY [None]
